FAERS Safety Report 20639587 (Version 2)
Quarter: 2022Q2

REPORT INFORMATION
  Report Type: Spontaneous
  Country: US (occurrence: US)
  Receive Date: 20220326
  Receipt Date: 20220424
  Transmission Date: 20220720
  Serious: No
  Sender: FDA-Public Use
  Company Number: US-SA-SAC20220321000176

PATIENT
  Sex: Female

DRUGS (1)
  1. AGALSIDASE BETA [Suspect]
     Active Substance: AGALSIDASE BETA
     Indication: Fabry^s disease
     Dosage: 80 MG (STRENGTH: 35 MG: DOSE 70 MG; STRENGTH: 5 MG: DOSE 10 MG), QOW
     Route: 042
     Dates: start: 20200904

REACTIONS (2)
  - Pruritus [Unknown]
  - Product dose omission issue [Unknown]
